FAERS Safety Report 6599319-8 (Version None)
Quarter: 2010Q1

REPORT INFORMATION
  Report Type: 
  Country: None (occurrence: None)
  Receive Date: 20100224
  Receipt Date: 20100211
  Transmission Date: 20100710
  Serious: Yes (Hospitalization)
  Sender: FDA-Public Use
  Company Number: KR-ELI_LILLY_AND_COMPANY-KR201002003378

PATIENT
  Sex: Female
  Weight: 47.3 kg

DRUGS (10)
  1. PEMETREXED [Suspect]
     Indication: NON-SMALL CELL LUNG CANCER
     Dosage: 500 MG/M2, DAY 1 EVERY 21 DAYS
     Route: 042
     Dates: start: 20100127
  2. CISPLATIN [Suspect]
     Indication: NON-SMALL CELL LUNG CANCER
     Dosage: 75 MG/M2, DAY 1 EVERY 21 DAYS
     Route: 042
     Dates: start: 20100127
  3. FOLIC ACID [Concomitant]
     Indication: PROPHYLAXIS
     Dates: start: 20100119, end: 20100131
  4. VITAMIN B-12 [Concomitant]
     Indication: PROPHYLAXIS
     Dates: start: 20100119, end: 20100119
  5. DEXAMETHASONE [Concomitant]
     Indication: PROPHYLAXIS
     Dates: start: 20100125, end: 20100128
  6. ZIPEPROL [Concomitant]
     Indication: COUGH
     Dates: start: 20100119, end: 20100131
  7. RANITIDINE [Concomitant]
     Indication: PROPHYLAXIS
     Dates: start: 20100125, end: 20100128
  8. FUROSEMIDE [Concomitant]
     Indication: PROPHYLAXIS
     Dates: start: 20100127, end: 20100127
  9. PALONOSETRON [Concomitant]
     Indication: PROPHYLAXIS
     Dates: start: 20100127, end: 20100127
  10. APREPITANT [Concomitant]
     Indication: PROPHYLAXIS
     Dates: start: 20100127, end: 20100129

REACTIONS (1)
  - ILEUS [None]
